FAERS Safety Report 8289417-5 (Version None)
Quarter: 2012Q2

REPORT INFORMATION
  Report Type: 
  Country: None (occurrence: None)
  Receive Date: 20120417
  Receipt Date: 20120404
  Transmission Date: 20120825
  Serious: Yes (Other)
  Sender: FDA-Public Use
  Company Number: CO-BRISTOL-MYERS SQUIBB COMPANY-16468829

PATIENT
  Age: 74 Year
  Sex: Female
  Weight: 69 kg

DRUGS (3)
  1. PACLITAXEL [Suspect]
     Route: 042
     Dates: start: 20111027
  2. CARBOPLATIN [Suspect]
     Route: 042
     Dates: start: 20111027
  3. IXEMPRA KIT [Suspect]

REACTIONS (4)
  - NEUROPATHY PERIPHERAL [None]
  - PALMAR-PLANTAR ERYTHRODYSAESTHESIA SYNDROME [None]
  - BONE PAIN [None]
  - ALOPECIA [None]
